FAERS Safety Report 15131887 (Version 1)
Quarter: 2018Q3

REPORT INFORMATION
  Report Type: Spontaneous
  Country: US (occurrence: US)
  Receive Date: 20180711
  Receipt Date: 20180711
  Transmission Date: 20181010
  Serious: No
  Sender: FDA-Public Use
  Company Number: US-GALDERMA-US18007850

PATIENT
  Sex: Female

DRUGS (1)
  1. DIFFERIN GEL [Suspect]
     Active Substance: ADAPALENE
     Indication: ACNE
     Dosage: 1%
     Route: 061

REACTIONS (4)
  - Erythema [Unknown]
  - Skin exfoliation [Unknown]
  - Drug ineffective [Unknown]
  - Dry skin [Unknown]
